FAERS Safety Report 13241350 (Version 4)
Quarter: 2017Q1

REPORT INFORMATION
  Report Type: Spontaneous
  Country: DE (occurrence: DE)
  Receive Date: 20170216
  Receipt Date: 20170329
  Transmission Date: 20170428
  Serious: Yes (Other)
  Sender: FDA-Public Use
  Company Number: ALCN2017DE001223

PATIENT
  Age: 80 Year
  Sex: Male
  Weight: 79 kg

DRUGS (7)
  1. XARELTO [Concomitant]
     Active Substance: RIVAROXABAN
     Indication: CARDIOVERSION
     Dosage: UNK
     Route: 065
  2. INFLANEFRAN [Concomitant]
     Indication: PRODUCT USED FOR UNKNOWN INDICATION
     Dosage: 3 DF, QD
     Route: 065
     Dates: start: 20170103, end: 20170130
  3. BISOPROLOL [Concomitant]
     Active Substance: BISOPROLOL
     Indication: BLOOD PRESSURE MANAGEMENT
     Dosage: 5 MG, QD
     Route: 065
  4. XARELTO [Concomitant]
     Active Substance: RIVAROXABAN
     Indication: CORONARY ARTERY DISEASE
  5. VALSARTAN. [Concomitant]
     Active Substance: VALSARTAN
     Indication: BLOOD PRESSURE MANAGEMENT
     Dosage: 80 MG, QD
     Route: 065
  6. ATORVASTATIN [Concomitant]
     Active Substance: ATORVASTATIN
     Indication: HYPERCHOLESTEROLAEMIA
     Dosage: 80 MG, QD
     Route: 065
  7. NEVANAC [Suspect]
     Active Substance: NEPAFENAC
     Indication: CYSTOID MACULAR OEDEMA
     Dosage: 3 GTT, QD
     Route: 047
     Dates: start: 20161212, end: 20170103

REACTIONS (5)
  - Choroidal effusion [Recovered/Resolved]
  - Visual acuity reduced [Recovered/Resolved]
  - Cystoid macular oedema [Not Recovered/Not Resolved]
  - Device dislocation [Recovered/Resolved]
  - Pseudomyopia [Recovered/Resolved]

NARRATIVE: CASE EVENT DATE: 20170126
